FAERS Safety Report 6294998-7 (Version None)
Quarter: 2009Q3

REPORT INFORMATION
  Report Type: 
  Country: None (occurrence: None)
  Receive Date: 20090803
  Receipt Date: 20090722
  Transmission Date: 20100115
  Serious: Yes (Life-Threatening)
  Sender: FDA-Public Use
  Company Number: CA-MERCK-0706CAN00101

PATIENT
  Age: 56 Year
  Sex: Female
  Weight: 84 kg

DRUGS (6)
  1. SINGULAIR [Suspect]
     Indication: ALLERGY TO ANIMAL
     Route: 048
     Dates: start: 20070206, end: 20070411
  2. SINGULAIR [Suspect]
     Route: 048
     Dates: start: 20070206, end: 20070411
  3. SINGULAIR [Suspect]
     Route: 048
     Dates: start: 20070206, end: 20070411
  4. IBUPROFEN [Concomitant]
     Route: 065
  5. VITAMINS (UNSPECIFIED) [Concomitant]
     Route: 065
  6. CALCIUM (UNSPECIFIED) [Concomitant]
     Route: 065

REACTIONS (14)
  - ABNORMAL DREAMS [None]
  - AGGRESSION [None]
  - ANXIETY [None]
  - CHEST PAIN [None]
  - CHOLELITHIASIS [None]
  - DYSPNOEA [None]
  - FATIGUE [None]
  - HYPERTENSION [None]
  - LOSS OF CONSCIOUSNESS [None]
  - MUSCULAR WEAKNESS [None]
  - NIGHTMARE [None]
  - PALPITATIONS [None]
  - PERSONALITY CHANGE [None]
  - SLEEP TERROR [None]
